FAERS Safety Report 25059522 (Version 2)
Quarter: 2025Q1

REPORT INFORMATION
  Report Type: Spontaneous
  Country: CN (occurrence: CN)
  Receive Date: 20250310
  Receipt Date: 20250311
  Transmission Date: 20250408
  Serious: Yes (Hospitalization, Other)
  Sender: ELI LILLY AND COMPANY
  Company Number: CN-Merck Healthcare KGaA-2025010251

PATIENT
  Age: 54 Year
  Sex: Male
  Weight: 82 kg

DRUGS (6)
  1. ERBITUX [Suspect]
     Active Substance: CETUXIMAB
     Indication: Metastatic salivary gland cancer
     Route: 041
     Dates: start: 20250212, end: 20250212
  2. GEMCITABINE HYDROCHLORIDE [Suspect]
     Active Substance: GEMCITABINE HYDROCHLORIDE
     Indication: Metastatic salivary gland cancer
     Dosage: 1.950 G, DAILY
     Route: 041
     Dates: start: 20250212, end: 20250212
  3. CISPLATIN [Suspect]
     Active Substance: CISPLATIN
     Indication: Metastatic salivary gland cancer
     Dosage: 50 MG, DAILY
     Route: 041
     Dates: start: 20250212, end: 20250213
  4. CISPLATIN [Suspect]
     Active Substance: CISPLATIN
     Dosage: 30 MG, DAILY
     Route: 041
     Dates: start: 20250214, end: 20250214
  5. SODIUM CHLORIDE [Concomitant]
     Active Substance: SODIUM CHLORIDE
     Indication: Medication dilution
     Dosage: 100 ML, DAILY
     Route: 041
     Dates: start: 20250212, end: 20250214
  6. SODIUM CHLORIDE [Concomitant]
     Active Substance: SODIUM CHLORIDE
     Dosage: 500 ML, DAILY
     Route: 041
     Dates: start: 20250212, end: 20250212

REACTIONS (3)
  - Platelet count decreased [Recovering/Resolving]
  - White blood cell count decreased [Recovering/Resolving]
  - Neutrophil count decreased [Recovering/Resolving]

NARRATIVE: CASE EVENT DATE: 20250218
